FAERS Safety Report 11515430 (Version 1)
Quarter: 2015Q3

REPORT INFORMATION
  Report Type: Report from Study
  Country: US (occurrence: US)
  Receive Date: 20150916
  Receipt Date: 20150916
  Transmission Date: 20151125
  Serious: Yes (Other)
  Sender: FDA-Public Use
  Company Number: US-JNJFOC-20150904220

PATIENT
  Sex: Female
  Weight: 93.9 kg

DRUGS (14)
  1. REMICADE [Suspect]
     Active Substance: INFLIXIMAB
     Indication: PSORIATIC ARTHROPATHY
     Route: 042
  2. REMICADE [Suspect]
     Active Substance: INFLIXIMAB
     Indication: PSORIATIC ARTHROPATHY
     Route: 042
     Dates: start: 201201
  3. DULOXETINE. [Concomitant]
     Active Substance: DULOXETINE
     Indication: FIBROMYALGIA
     Route: 065
  4. OMEPRAZOLE. [Concomitant]
     Active Substance: OMEPRAZOLE
     Indication: GASTROOESOPHAGEAL REFLUX DISEASE
     Route: 065
  5. REMICADE [Suspect]
     Active Substance: INFLIXIMAB
     Indication: PSORIATIC ARTHROPATHY
     Route: 042
     Dates: end: 20150505
  6. REMICADE [Suspect]
     Active Substance: INFLIXIMAB
     Indication: RHEUMATOID ARTHRITIS
     Route: 042
     Dates: end: 20150505
  7. PREMPRO [Concomitant]
     Active Substance: ESTROGENS, CONJUGATED\MEDROXYPROGESTERONE ACETATE
     Indication: MENOPAUSE
     Route: 065
  8. GABAPENTIN. [Concomitant]
     Active Substance: GABAPENTIN
     Indication: FIBROMYALGIA
     Route: 065
  9. REMICADE [Suspect]
     Active Substance: INFLIXIMAB
     Indication: RHEUMATOID ARTHRITIS
     Route: 042
     Dates: start: 201201
  10. PRIMIDON [Concomitant]
     Active Substance: PRIMIDONE
     Indication: TREMOR
     Dosage: AT NIGHT
     Route: 065
  11. REMICADE [Suspect]
     Active Substance: INFLIXIMAB
     Indication: RHEUMATOID ARTHRITIS
     Route: 042
  12. ORACEA [Concomitant]
     Active Substance: DOXYCYCLINE
     Indication: ROSACEA
     Route: 065
  13. DICYCLOMINE [Concomitant]
     Active Substance: DICYCLOMINE HYDROCHLORIDE
     Indication: IRRITABLE BOWEL SYNDROME
     Route: 065
  14. MONTELUKAST SODIUM. [Concomitant]
     Active Substance: MONTELUKAST SODIUM
     Dosage: AT BED TIME
     Route: 065

REACTIONS (6)
  - Weight increased [Recovered/Resolved]
  - Joint arthroplasty [Unknown]
  - Systemic lupus erythematosus [Unknown]
  - Hepatic steatosis [Not Recovered/Not Resolved]
  - Drug ineffective [Unknown]
  - Psoriasis [Unknown]
